FAERS Safety Report 17188090 (Version 1)
Quarter: 2019Q4

REPORT INFORMATION
  Report Type: Spontaneous
  Country: CN (occurrence: CN)
  Receive Date: 20191221
  Receipt Date: 20191221
  Transmission Date: 20200122
  Serious: Yes (Other)
  Sender: FDA-Public Use
  Company Number: CN-009507513-1912CHN009608

PATIENT
  Sex: Male
  Weight: 53 kg

DRUGS (4)
  1. ORNIDAZOLE [Suspect]
     Active Substance: ORNIDAZOLE
     Dosage: UNK
  2. PIPERACILLIN AND TAZOBACTAM [Suspect]
     Active Substance: PIPERACILLIN SODIUM\TAZOBACTAM SODIUM
     Dosage: UNK
  3. IMIPENEM AND CILASTATIN [Suspect]
     Active Substance: CILASTATIN SODIUM\IMIPENEM
     Dosage: UNK
  4. CEFOPERAZONE SODIUM (+) SULBACTAM SODIUM [Suspect]
     Active Substance: CEFOPERAZONE SODIUM\SULBACTAM SODIUM
     Dosage: UNK

REACTIONS (2)
  - Fungal infection [Recovered/Resolved]
  - Enteritis infectious [Recovered/Resolved]
